FAERS Safety Report 6024812-6 (Version None)
Quarter: 2008Q4

REPORT INFORMATION
  Report Type: 
  Country: None (occurrence: None)
  Receive Date: 20081230
  Receipt Date: 20081230
  Transmission Date: 20090506
  Serious: Yes (Hospitalization)
  Sender: FDA-Public Use
  Company Number: None

PATIENT
  Sex: Male
  Weight: 75 kg

DRUGS (7)
  1. SPRYCEL [Suspect]
     Indication: PROSTATE CANCER
     Dosage: 70MG BID -TWICE A DAY- PO
     Route: 048
     Dates: start: 20081212, end: 20081225
  2. FLEXERIL [Concomitant]
  3. NORVASC [Concomitant]
  4. CALCIUM [Concomitant]
  5. FENTANLYL [Concomitant]
  6. COMPAZINE [Concomitant]
  7. MAGNESIUM SULFATE [Concomitant]

REACTIONS (4)
  - GAIT DISTURBANCE [None]
  - LUMBAR RADICULOPATHY [None]
  - MUSCULAR WEAKNESS [None]
  - SPINAL CORD COMPRESSION [None]
